FAERS Safety Report 15678218 (Version 1)
Quarter: 2018Q4

REPORT INFORMATION
  Report Type: Report from Study
  Country: ES (occurrence: ES)
  Receive Date: 20181201
  Receipt Date: 20181201
  Transmission Date: 20190205
  Serious: Yes (Life-Threatening, Hospitalization, Other)
  Sender: FDA-Public Use
  Company Number: ES-TEVA-2018-ES-980760

PATIENT
  Age: 69 Year
  Sex: Female

DRUGS (6)
  1. LORMETAZEPAM (88A) [Concomitant]
     Active Substance: LORMETAZEPAM
     Dosage: 1 MILLIGRAM DAILY;
     Route: 048
     Dates: end: 20180209
  2. ACENOCUMAROL (220A) [Interacting]
     Active Substance: ACENOCOUMAROL
     Indication: DEEP VEIN THROMBOSIS
     Route: 048
     Dates: start: 20180208, end: 20180209
  3. PAROXETINA (2586A) [Suspect]
     Active Substance: PAROXETINE
     Dosage: 20 MILLIGRAM DAILY;
     Route: 048
     Dates: start: 20140121, end: 20180209
  4. ENALAPRIL MALEATO (2142MA) [Concomitant]
     Active Substance: ENALAPRIL MALEATE
     Indication: HYPERTENSION
     Dosage: 10 MILLIGRAM DAILY;
     Route: 048
     Dates: end: 20180209
  5. ENOXAPARINA SODICA (2482SO) [Interacting]
     Active Substance: ENOXAPARIN SODIUM
     Indication: DEEP VEIN THROMBOSIS
     Dosage: 160 MILLIGRAM DAILY;
     Route: 058
     Dates: start: 20180112, end: 20180209
  6. ZALDIAR 37,5 MG/325 MG COMPRIMIDOS EFERVESCENTES , 20 COMPRIMIDOS [Concomitant]
     Dosage: 75 MILLIGRAM DAILY;
     Route: 048
     Dates: start: 20171205, end: 20180209

REACTIONS (2)
  - Haemorrhage intracranial [Recovering/Resolving]
  - Drug interaction [Unknown]

NARRATIVE: CASE EVENT DATE: 20180209
